FAERS Safety Report 5333494-8 (Version None)
Quarter: 2007Q2

REPORT INFORMATION
  Report Type: 
  Country: None (occurrence: None)
  Receive Date: 20070522
  Receipt Date: 20070522
  Transmission Date: 20071010
  Serious: Yes (Other)
  Sender: FDA-Public Use
  Company Number: None

PATIENT
  Sex: Male

DRUGS (12)
  1. REVLIMID [Suspect]
     Indication: MULTIPLE MYELOMA
     Dosage: 25MG DAILY 21D/28D PO
     Route: 048
  2. MAXZIDE [Concomitant]
  3. MEGESTROL ACETATE [Concomitant]
  4. FAMOTIDINE [Concomitant]
  5. FLUOXETINE [Concomitant]
  6. PROCRIT [Concomitant]
  7. PROVENTIL-HFA [Concomitant]
  8. NEUPOGEN [Concomitant]
  9. PROMETHAZINE/COD [Concomitant]
  10. AUGMENTIN '125' [Concomitant]
  11. LEVAQUIN [Concomitant]
  12. CIPRO [Concomitant]

REACTIONS (2)
  - BLOOD IMMUNOGLOBULIN A INCREASED [None]
  - FEBRILE NEUTROPENIA [None]
